FAERS Safety Report 7562534-0 (Version None)
Quarter: 2011Q2

REPORT INFORMATION
  Report Type: 
  Country: None (occurrence: None)
  Receive Date: 20110621
  Receipt Date: 20110621
  Transmission Date: 20111010
  Serious: Yes (Hospitalization)
  Sender: FDA-Public Use
  Company Number: None

PATIENT
  Sex: Male
  Weight: 122 kg

DRUGS (4)
  1. METOPROLOL TARTRATE [Concomitant]
  2. PRADAXA [Suspect]
     Indication: ATRIAL FIBRILLATION
     Dosage: 150MG BID PO
     Route: 048
     Dates: start: 20110614, end: 20110618
  3. LANTUS [Concomitant]
  4. DILTIAZEM CD [Concomitant]

REACTIONS (3)
  - UNEVALUABLE EVENT [None]
  - RENAL IMPAIRMENT [None]
  - LIVER DISORDER [None]
